FAERS Safety Report 11399354 (Version 1)
Quarter: 2015Q3

REPORT INFORMATION
  Report Type: Spontaneous
  Country: IT (occurrence: IT)
  Receive Date: 20150820
  Receipt Date: 20150820
  Transmission Date: 20151125
  Serious: Yes (Other)
  Sender: FDA-Public Use
  Company Number: IT-SUN PHARMACEUTICAL INDUSTRIES LTD-2015RR-101779

PATIENT

DRUGS (2)
  1. SYNFLEX [Suspect]
     Active Substance: NAPROXEN SODIUM
     Indication: TOOTHACHE
     Dosage: 1 DF, TOTAL
     Route: 048
     Dates: start: 20150803, end: 20150803
  2. AMOXICILLINA [Suspect]
     Active Substance: AMOXICILLIN
     Indication: TOOTHACHE
     Dosage: 1 DF, TOTAL
     Route: 048
     Dates: start: 20150803, end: 20150803

REACTIONS (3)
  - Erythema [Recovering/Resolving]
  - Face oedema [Recovering/Resolving]
  - Tongue oedema [Recovering/Resolving]

NARRATIVE: CASE EVENT DATE: 20150803
